FAERS Safety Report 4659213-6 (Version None)
Quarter: 2005Q2

REPORT INFORMATION
  Report Type: 
  Country: None (occurrence: None)
  Receive Date: 20050511
  Receipt Date: 20050503
  Transmission Date: 20051028
  Serious: Yes (Hospitalization)
  Sender: FDA-Public Use
  Company Number: 2005AC00674

PATIENT
  Age: 22545 Day
  Sex: Male

DRUGS (4)
  1. CRESTOR [Suspect]
     Route: 048
     Dates: start: 20050301
  2. SYMBICORT TURBUHALER [Suspect]
     Dosage: 100/6MCG/DO
     Route: 055
     Dates: start: 19951001
  3. NEBILET [Suspect]
     Route: 048
     Dates: start: 20050301
  4. ACETYLSALICYLZUUR [Suspect]
     Route: 048
     Dates: start: 20041201

REACTIONS (1)
  - DIFFICULTY IN WALKING [None]
